FAERS Safety Report 5678257-9 (Version None)
Quarter: 2008Q1

REPORT INFORMATION
  Report Type: 
  Country: None (occurrence: None)
  Receive Date: 20080319
  Receipt Date: 20080305
  Transmission Date: 20080703
  Serious: Yes (Other)
  Sender: FDA-Public Use
  Company Number: S08-CHL-01012-01

PATIENT
  Sex: Female

DRUGS (2)
  1. LEXAPRO [Suspect]
  2. ORAL CONTRACEPTIVES (NOS) [Suspect]

REACTIONS (1)
  - PREGNANCY [None]
